FAERS Safety Report 15373726 (Version 3)
Quarter: 2018Q4

REPORT INFORMATION
  Report Type: Spontaneous
  Country: US (occurrence: US)
  Receive Date: 20180912
  Receipt Date: 20181022
  Transmission Date: 20190204
  Serious: No
  Sender: FDA-Public Use
  Company Number: US-PFIZER INC-2018366287

PATIENT
  Age: 21 Year
  Sex: Male

DRUGS (2)
  1. GENOTROPIN [Suspect]
     Active Substance: SOMATROPIN
     Dosage: UNK (TAKING TWICE THE DOSE OF GENOTROPIN)
  2. GENOTROPIN [Suspect]
     Active Substance: SOMATROPIN
     Dosage: 1.6 MG, UNK (3 DAYS A WEEK)

REACTIONS (4)
  - Wrong device used [Unknown]
  - Hyperhidrosis [Unknown]
  - Fatigue [Recovering/Resolving]
  - Chest discomfort [Unknown]
